FAERS Safety Report 15105424 (Version 5)
Quarter: 2019Q3

REPORT INFORMATION
  Report Type: Report from Study
  Country: None (occurrence: CA)
  Receive Date: 20180704
  Receipt Date: 20190701
  Transmission Date: 20191004
  Serious: Yes (Other)
  Sender: FDA-Public Use
  Company Number: CA-ABBVIE-18K-028-2404662-00

PATIENT
  Sex: Male

DRUGS (2)
  1. HUMIRA [Suspect]
     Active Substance: ADALIMUMAB
     Indication: CROHN^S DISEASE
     Route: 058
     Dates: start: 20170316, end: 2018
  2. HUMIRA [Suspect]
     Active Substance: ADALIMUMAB
     Route: 058
     Dates: start: 2018

REACTIONS (11)
  - Gastrointestinal stenosis [Recovered/Resolved]
  - Psoriasis [Unknown]
  - Stoma complication [Not Recovered/Not Resolved]
  - Stoma site haemorrhage [Recovered/Resolved]
  - Skin disorder [Not Recovered/Not Resolved]
  - Stress [Recovered/Resolved]
  - Adverse drug reaction [Recovered/Resolved]
  - Diarrhoea [Not Recovered/Not Resolved]
  - Sleep deficit [Not Recovered/Not Resolved]
  - Malaise [Recovered/Resolved]
  - Post procedural discharge [Not Recovered/Not Resolved]

NARRATIVE: CASE EVENT DATE: 2018
